FAERS Safety Report 8464195-5 (Version None)
Quarter: 2012Q2

REPORT INFORMATION
  Report Type: 
  Country: None (occurrence: None)
  Receive Date: 20120625
  Receipt Date: 20120620
  Transmission Date: 20120825
  Serious: Yes (Other)
  Sender: FDA-Public Use
  Company Number: CA-AMGEN-CANSP2012036621

PATIENT
  Age: 50 Year
  Sex: Female

DRUGS (1)
  1. ENBREL [Suspect]
     Indication: RHEUMATOID ARTHRITIS
     Dosage: 50 MG, QWK
     Dates: start: 20120523

REACTIONS (6)
  - GAIT DISTURBANCE [None]
  - NAUSEA [None]
  - JOINT SWELLING [None]
  - ASTHENIA [None]
  - DRUG INEFFECTIVE [None]
  - PAIN [None]
